FAERS Safety Report 23781726 (Version 2)
Quarter: 2024Q2

REPORT INFORMATION
  Report Type: Report from Study
  Country: FR (occurrence: None)
  Receive Date: 20240425
  Receipt Date: 20240610
  Transmission Date: 20240716
  Serious: Yes (Other)
  Sender: FDA-Public Use
  Company Number: 2024A094861

PATIENT
  Sex: Male

DRUGS (1)
  1. IMFINZI [Suspect]
     Active Substance: DURVALUMAB
     Indication: Bile duct cancer
     Dosage: EVERY Q2W WEEKS PLUS IN MAINTENANCE EVERY Q3W WEEKS

REACTIONS (2)
  - Toxicity to various agents [Unknown]
  - Off label use [Unknown]
